FAERS Safety Report 9529783 (Version 2)
Quarter: 2013Q4

REPORT INFORMATION
  Report Type: Spontaneous
  Country: US (occurrence: US)
  Receive Date: 20130917
  Receipt Date: 20131002
  Transmission Date: 20140711
  Serious: No
  Sender: FDA-Public Use
  Company Number: US-TEVA-432053USA

PATIENT
  Sex: Male
  Weight: 111.23 kg

DRUGS (3)
  1. FENTORA [Suspect]
     Indication: BREAKTHROUGH PAIN
     Route: 002
  2. OXYCONTIN [Concomitant]
     Indication: PAIN
     Route: 048
  3. CYMBALTA [Concomitant]

REACTIONS (5)
  - Wrong technique in drug usage process [Unknown]
  - Drug effect decreased [Unknown]
  - Drug administration error [Unknown]
  - Somnolence [Unknown]
  - Pain [Unknown]
